FAERS Safety Report 25190291 (Version 1)
Quarter: 2025Q2

REPORT INFORMATION
  Report Type: Spontaneous
  Country: US (occurrence: US)
  Receive Date: 20250411
  Receipt Date: 20250411
  Transmission Date: 20250717
  Serious: Yes (Hospitalization)
  Sender: RECKITT BENCKISER
  Company Number: US-INDIVIOR US-INDV-160319-2025

PATIENT
  Age: 39 Year
  Sex: Female

DRUGS (6)
  1. BUPRENORPHINE\NALOXONE [Suspect]
     Active Substance: BUPRENORPHINE\NALOXONE
     Indication: Drug dependence
     Dosage: 8 MILLIGRAM, BID
     Route: 065
  2. LISINOPRIL [Concomitant]
     Active Substance: LISINOPRIL
     Indication: Product used for unknown indication
     Dosage: 10 MILLIGRAM, QD
     Route: 065
  3. PAROXETINE [Concomitant]
     Active Substance: PAROXETINE
     Indication: Product used for unknown indication
     Dosage: 30 MILLIGRAM, QD
     Route: 065
  4. PAROXETINE [Concomitant]
     Active Substance: PAROXETINE
     Dosage: 40 MILLIGRAM, QD
     Route: 065
  5. MIRTAZAPINE [Concomitant]
     Active Substance: MIRTAZAPINE
     Indication: Product used for unknown indication
     Dosage: 30 MILLIGRAM, QD
     Route: 065
  6. SUMATRIPTAN [Concomitant]
     Active Substance: SUMATRIPTAN
     Indication: Product used for unknown indication
     Route: 065

REACTIONS (3)
  - Reversible cerebral vasoconstriction syndrome [Recovering/Resolving]
  - Adjustment disorder with anxiety [Unknown]
  - Inappropriate schedule of product administration [Not Recovered/Not Resolved]
